FAERS Safety Report 5232054-7 (Version None)
Quarter: 2007Q1

REPORT INFORMATION
  Report Type: 
  Country: None (occurrence: None)
  Receive Date: 20061201
  Receipt Date: 20060825
  Transmission Date: 20070707
  Serious: No
  Sender: FDA-Public Use
  Company Number: US200608005838

PATIENT
  Age: 56 Year
  Sex: Male
  Weight: 137.9 kg

DRUGS (1)
  1. CYMBALTA [Suspect]
     Dates: start: 20060626

REACTIONS (1)
  - DIABETES MELLITUS [None]
